FAERS Safety Report 6699491-5 (Version None)
Quarter: 2010Q2

REPORT INFORMATION
  Report Type: 
  Country: None (occurrence: None)
  Receive Date: 20100426
  Receipt Date: 20100413
  Transmission Date: 20101027
  Serious: Yes (Hospitalization)
  Sender: FDA-Public Use
  Company Number: BR-SOLVAY-00310001661

PATIENT
  Age: 49 Year
  Sex: Female

DRUGS (6)
  1. LUVOX [Suspect]
     Indication: BORDERLINE PERSONALITY DISORDER
     Route: 048
     Dates: start: 20100316, end: 20100316
  2. LUVOX [Suspect]
     Indication: DEPRESSION
     Route: 048
     Dates: start: 20100316, end: 20100316
  3. CHLORPROMAZINE [Suspect]
     Indication: DRUG USE FOR UNKNOWN INDICATION
     Dates: end: 20100101
  4. CHLORPROMAZINE [Suspect]
     Indication: DRUG USE FOR UNKNOWN INDICATION
     Dates: start: 20100316, end: 20100316
  5. CLONAZEPAM [Suspect]
     Indication: DRUG USE FOR UNKNOWN INDICATION
     Route: 048
     Dates: start: 20100316, end: 20100316
  6. LAMOTRIGINE [Concomitant]
     Indication: DRUG USE FOR UNKNOWN INDICATION
     Route: 048
     Dates: start: 20100316, end: 20100316

REACTIONS (4)
  - COMA [None]
  - INTENTIONAL OVERDOSE [None]
  - LISTLESS [None]
  - SUICIDE ATTEMPT [None]
